FAERS Safety Report 16824546 (Version 1)
Quarter: 2019Q3

REPORT INFORMATION
  Report Type: Spontaneous
  Country: DE (occurrence: DE)
  Receive Date: 20190918
  Receipt Date: 20190918
  Transmission Date: 20191005
  Serious: Yes (Other)
  Sender: FDA-Public Use
  Company Number: DE-JNJFOC-20190919997

PATIENT
  Age: 80 Year
  Sex: Female

DRUGS (1)
  1. RIVAROXABAN [Suspect]
     Active Substance: RIVAROXABAN
     Indication: PRODUCT USED FOR UNKNOWN INDICATION
     Dosage: 20 MG
     Route: 048
     Dates: end: 20190910

REACTIONS (7)
  - Angina pectoris [Unknown]
  - Pain [Unknown]
  - Breast pain [Unknown]
  - Incorrect dose administered [Unknown]
  - Chest discomfort [Unknown]
  - Back pain [Unknown]
  - Off label use [Unknown]
